FAERS Safety Report 23438546 (Version 2)
Quarter: 2024Q1

REPORT INFORMATION
  Report Type: Spontaneous
  Country: US (occurrence: US)
  Receive Date: 20240124
  Receipt Date: 20240130
  Transmission Date: 20240410
  Serious: Yes (Other)
  Sender: FDA-Public Use
  Company Number: US-AMGEN-USASP2024012414

PATIENT
  Age: 49 Year
  Sex: Female

DRUGS (1)
  1. INFLIXIMAB [Suspect]
     Active Substance: INFLIXIMAB
     Indication: Crohn^s disease
     Dosage: 900 MILLIGRAM, EVERY 5 WEEKS
     Route: 042

REACTIONS (5)
  - Autoimmune hepatitis [Unknown]
  - Cholangitis [Unknown]
  - Biliary dilatation [Unknown]
  - Inappropriate schedule of product administration [Unknown]
  - Off label use [Unknown]
